FAERS Safety Report 18334739 (Version 3)
Quarter: 2020Q4

REPORT INFORMATION
  Report Type: Report from Study
  Country: US (occurrence: US)
  Receive Date: 20201001
  Receipt Date: 20201103
  Transmission Date: 20210113
  Serious: No
  Sender: FDA-Public Use
  Company Number: US-BIOVITRUM-2020US5204

PATIENT
  Age: 42 Year
  Sex: Female

DRUGS (3)
  1. KINERET [Suspect]
     Active Substance: ANAKINRA
     Indication: PERICARDITIS
     Route: 058
     Dates: start: 20200920
  2. IBUPROFEN. [Concomitant]
     Active Substance: IBUPROFEN
  3. COLCHICINE. [Concomitant]
     Active Substance: COLCHICINE

REACTIONS (7)
  - Injection site pruritus [Recovering/Resolving]
  - Injection site bruising [Recovering/Resolving]
  - Off label use [Not Recovered/Not Resolved]
  - Diarrhoea [Unknown]
  - Injection site swelling [Recovering/Resolving]
  - Injection site pain [Recovering/Resolving]
  - Injection site warmth [Recovering/Resolving]

NARRATIVE: CASE EVENT DATE: 20200920
